FAERS Safety Report 13284228 (Version 2)
Quarter: 2017Q1

REPORT INFORMATION
  Report Type: Spontaneous
  Country: JP (occurrence: JP)
  Receive Date: 20170301
  Receipt Date: 20170302
  Transmission Date: 20170428
  Serious: Yes (Other)
  Sender: FDA-Public Use
  Company Number: JP-JNJFOC-20170222591

PATIENT

DRUGS (4)
  1. FLOUROURACIL [Suspect]
     Active Substance: FLUOROURACIL
     Indication: OESOPHAGEAL SQUAMOUS CELL CARCINOMA
     Dosage: FOR 7 DAYS
     Route: 065
  2. DOXORUBICIN HYDROCHLORIDE. [Suspect]
     Active Substance: DOXORUBICIN HYDROCHLORIDE
     Indication: OESOPHAGEAL SQUAMOUS CELL CARCINOMA
     Route: 065
  3. DOXORUBICIN HYDROCHLORIDE. [Suspect]
     Active Substance: DOXORUBICIN HYDROCHLORIDE
     Indication: OESOPHAGEAL SQUAMOUS CELL CARCINOMA
     Route: 065
  4. CISPLATIN. [Suspect]
     Active Substance: CISPLATIN
     Indication: OESOPHAGEAL SQUAMOUS CELL CARCINOMA
     Dosage: ON DAY 01
     Route: 065

REACTIONS (16)
  - Febrile neutropenia [Unknown]
  - Anaemia [Unknown]
  - Stomatitis [Unknown]
  - Diarrhoea [Unknown]
  - Venous thrombosis [Unknown]
  - Neutropenia [Unknown]
  - Hyponatraemia [Unknown]
  - Nephropathy toxic [Unknown]
  - Leukopenia [Unknown]
  - Thrombocytopenia [Unknown]
  - Nausea [Unknown]
  - Gastric ulcer [Unknown]
  - Decreased appetite [Unknown]
  - Off label use [Unknown]
  - Product use issue [Unknown]
  - Vomiting [Unknown]
